FAERS Safety Report 9170309 (Version 1)
Quarter: 2013Q1

REPORT INFORMATION
  Report Type: Spontaneous
  Country: FR (occurrence: FR)
  Receive Date: 20130319
  Receipt Date: 20130319
  Transmission Date: 20140127
  Serious: Yes (Hospitalization, Other)
  Sender: FDA-Public Use
  Company Number: FR-JNJFOC-20130307241

PATIENT
  Age: 87 Year
  Sex: Female

DRUGS (7)
  1. XARELTO [Suspect]
     Indication: PRODUCT USED FOR UNKNOWN INDICATION
     Route: 048
     Dates: start: 201209, end: 20130129
  2. DIFFU K [Concomitant]
     Route: 048
  3. AMLOR [Concomitant]
     Route: 048
  4. TAHOR [Concomitant]
     Route: 048
  5. DETENSIEL [Concomitant]
     Route: 048
  6. CORVASAL [Concomitant]
     Route: 048
  7. LASILIX [Concomitant]
     Route: 048

REACTIONS (3)
  - Pelvic haematoma [Recovering/Resolving]
  - Haemorrhage [Recovering/Resolving]
  - Anaemia [Recovering/Resolving]
